FAERS Safety Report 8950911 (Version 1)
Quarter: 2012Q4

REPORT INFORMATION
  Report Type: 
  Country: US (occurrence: US)
  Receive Date: 20121207
  Receipt Date: 20121207
  Transmission Date: 20130627
  Serious: Yes (Other)
  Sender: FDA-Public Use
  Company Number: US-BAYER-2012-113931

PATIENT
  Age: 67 Year
  Sex: Female

DRUGS (1)
  1. STIVARGA [Suspect]
     Indication: COLON CANCER
     Dosage: 160 mg, QD
     Route: 048
     Dates: start: 20121023

REACTIONS (12)
  - Pain in extremity [None]
  - Mobility decreased [Recovered/Resolved]
  - Plantar erythema [Not Recovered/Not Resolved]
  - Pain in extremity [Not Recovered/Not Resolved]
  - Paraesthesia [None]
  - Hypertension [Not Recovered/Not Resolved]
  - Headache [Not Recovered/Not Resolved]
  - Musculoskeletal discomfort [Not Recovered/Not Resolved]
  - Blister [Recovering/Resolving]
  - Burning sensation [None]
  - Skin exfoliation [Recovering/Resolving]
  - Skin exfoliation [None]
